FAERS Safety Report 16188311 (Version 1)
Quarter: 2019Q2

REPORT INFORMATION
  Report Type: Spontaneous
  Country: US (occurrence: US)
  Receive Date: 20190412
  Receipt Date: 20190412
  Transmission Date: 20190711
  Serious: Yes (Death, Hospitalization, Other)
  Sender: FDA-Public Use
  Company Number: US-SA-2019SA099641

PATIENT
  Age: 67 Year
  Sex: Male

DRUGS (1)
  1. AUBAGIO [Suspect]
     Active Substance: TERIFLUNOMIDE
     Indication: MULTIPLE SCLEROSIS
     Dosage: UNK
     Dates: start: 2012, end: 201901

REACTIONS (4)
  - Gastrooesophageal reflux disease [Unknown]
  - Dysphagia [Unknown]
  - Cardiac arrest [Fatal]
  - Pain in extremity [Unknown]

NARRATIVE: CASE EVENT DATE: 201902
